FAERS Safety Report 12178553 (Version 2)
Quarter: 2016Q2

REPORT INFORMATION
  Report Type: Spontaneous
  Country: US (occurrence: US)
  Receive Date: 20160314
  Receipt Date: 20160607
  Transmission Date: 20160815
  Serious: No
  Sender: FDA-Public Use
  Company Number: US-SA-2016SA003136

PATIENT
  Age: 65 Year
  Sex: Male

DRUGS (7)
  1. TOUJEO [Suspect]
     Active Substance: INSULIN GLARGINE
     Indication: TYPE 2 DIABETES MELLITUS
     Dosage: AT NIGHT DOSE:30 UNIT(S)
     Route: 065
  2. TOUJEO [Suspect]
     Active Substance: INSULIN GLARGINE
     Indication: TYPE 2 DIABETES MELLITUS
     Dosage: AT NIGHT DOSE:20 UNIT(S)
     Route: 065
     Dates: start: 20160104
  3. SOLOSTAR [Concomitant]
     Active Substance: DEVICE
  4. METFORMIN [Concomitant]
     Active Substance: METFORMIN HYDROCHLORIDE
  5. TOUJEO [Suspect]
     Active Substance: INSULIN GLARGINE
     Indication: TYPE 2 DIABETES MELLITUS
     Dosage: AT NIGHT DOSE:10 UNIT(S)
     Route: 065
     Dates: start: 20151203, end: 20160103
  6. SOLOSTAR [Concomitant]
     Active Substance: DEVICE
     Dates: start: 20160104
  7. SOLOSTAR [Concomitant]
     Active Substance: DEVICE
     Dates: start: 201512, end: 20160103

REACTIONS (1)
  - Blood glucose increased [Recovered/Resolved]
